FAERS Safety Report 7151751-X (Version None)
Quarter: 2010Q4

REPORT INFORMATION
  Report Type: 
  Country: None (occurrence: None)
  Receive Date: 20101123
  Receipt Date: 20101012
  Transmission Date: 20110411
  Serious: No
  Sender: FDA-Public Use
  Company Number: 020511

PATIENT
  Sex: Female
  Weight: 94.3 kg

DRUGS (7)
  1. CIMZIA [Suspect]
     Indication: CROHN'S DISEASE
     Dosage: 400 MG 1X/4 WEEKS SUBCUTANEOUS
     Route: 058
     Dates: start: 20090401, end: 20100708
  2. CIPRO [Concomitant]
  3. FLAGYL [Concomitant]
  4. FOLIC ACID [Concomitant]
  5. ESTROGEN NOS [Concomitant]
  6. CALCIUM [Concomitant]
  7. SULFASALAZINE [Concomitant]

REACTIONS (4)
  - ABSCESS [None]
  - HYPERHIDROSIS [None]
  - INFECTION [None]
  - MALAISE [None]
